FAERS Safety Report 13784985 (Version 1)
Quarter: 2017Q3

REPORT INFORMATION
  Report Type: Spontaneous
  Country: TW (occurrence: TW)
  Receive Date: 20170724
  Receipt Date: 20170724
  Transmission Date: 20171127
  Serious: Yes (Death)
  Sender: FDA-Public Use
  Company Number: TW-ASTRAZENECA-2017SE65606

PATIENT
  Age: 60 Year
  Sex: Male

DRUGS (1)
  1. TAGRISSO [Suspect]
     Active Substance: OSIMERTINIB
     Route: 048
     Dates: start: 20170605

REACTIONS (4)
  - Decreased appetite [Unknown]
  - Pleural effusion [Fatal]
  - General physical health deterioration [Unknown]
  - Drug ineffective [Fatal]

NARRATIVE: CASE EVENT DATE: 20170625
